FAERS Safety Report 7497772-9 (Version None)
Quarter: 2011Q2

REPORT INFORMATION
  Report Type: 
  Country: None (occurrence: None)
  Receive Date: 20110524
  Receipt Date: 20110518
  Transmission Date: 20111010
  Serious: Yes (Hospitalization, Other)
  Sender: FDA-Public Use
  Company Number: IT-BRISTOL-MYERS SQUIBB COMPANY-15716137

PATIENT
  Age: 5 Decade
  Sex: Female

DRUGS (2)
  1. ENTECAVIR [Suspect]
     Indication: HEPATITIS B
  2. METHOTREXATE [Suspect]

REACTIONS (1)
  - PANCREATITIS ACUTE [None]
